FAERS Safety Report 4376198-0 (Version None)
Quarter: 2004Q2

REPORT INFORMATION
  Report Type: 
  Country: None (occurrence: None)
  Receive Date: 20040610
  Receipt Date: 20040610
  Transmission Date: 20050107
  Serious: No
  Sender: FDA-Public Use
  Company Number: None

PATIENT
  Age: 62 Year
  Sex: Male
  Weight: 94 kg

DRUGS (3)
  1. METHOTREXATE [Suspect]
     Indication: ARTHRITIS
     Dosage: 20 MG Q WK SQ
     Route: 058
     Dates: start: 20040416
  2. METHOTREXATE [Suspect]
     Indication: ARTHRITIS
     Dosage: 20 MG Q WK SQ
     Route: 058
     Dates: start: 20040423
  3. METHOTREXATE [Suspect]
     Indication: ARTHRITIS
     Dosage: 20 MG Q WK SQ
     Route: 058
     Dates: start: 20040609

REACTIONS (9)
  - ABDOMINAL PAIN [None]
  - BLISTER [None]
  - ERYTHEMA [None]
  - MOBILITY DECREASED [None]
  - MUSCULOSKELETAL STIFFNESS [None]
  - NAUSEA [None]
  - ORAL MUCOSAL BLISTERING [None]
  - PAIN [None]
  - SWELLING [None]
